FAERS Safety Report 8680816 (Version 3)
Quarter: 2013Q4

REPORT INFORMATION
  Report Type: Spontaneous
  Country: US (occurrence: US)
  Receive Date: 20120724
  Receipt Date: 20131031
  Transmission Date: 20140711
  Serious: Yes (Other)
  Sender: FDA-Public Use
  Company Number: US-009507513-1207USA002832

PATIENT
  Age: 20 Year
  Sex: Female

DRUGS (1)
  1. NEXPLANON [Suspect]
     Indication: CONTRACEPTION
     Dosage: UNK
     Route: 059
     Dates: start: 201202

REACTIONS (5)
  - Abortion [Unknown]
  - Implant site pain [Unknown]
  - Unintended pregnancy [Recovered/Resolved]
  - Complication of device insertion [Recovered/Resolved]
  - Medical device complication [Recovered/Resolved]
